FAERS Safety Report 5643633-7 (Version None)
Quarter: 2008Q1

REPORT INFORMATION
  Report Type: 
  Country: None (occurrence: None)
  Receive Date: 20080228
  Receipt Date: 20080216
  Transmission Date: 20080703
  Serious: Yes (Other)
  Sender: FDA-Public Use
  Company Number: US-PFIZER INC-2007108290

PATIENT
  Sex: Female

DRUGS (2)
  1. DILANTIN [Suspect]
  2. KEPPRA [Suspect]

REACTIONS (7)
  - AMNESIA [None]
  - CONVULSION [None]
  - DIZZINESS [None]
  - FATIGUE [None]
  - INJURY [None]
  - MEDICATION ERROR [None]
  - NYSTAGMUS [None]
